FAERS Safety Report 9918114 (Version 1)
Quarter: 2014Q1

REPORT INFORMATION
  Report Type: Spontaneous
  Country: US (occurrence: US)
  Receive Date: 20140223
  Receipt Date: 20140223
  Transmission Date: 20141002
  Serious: No
  Sender: FDA-Public Use
  Company Number: US-ALLERGAN-1315217US

PATIENT
  Age: 16 Year
  Sex: Female

DRUGS (1)
  1. TAZORAC GEL 0.1% [Suspect]
     Indication: ACNE
     Dosage: UNK
     Route: 061
     Dates: start: 2012

REACTIONS (1)
  - Exposure during pregnancy [Unknown]
